FAERS Safety Report 6164391-6 (Version None)
Quarter: 2009Q2

REPORT INFORMATION
  Report Type: 
  Country: None (occurrence: None)
  Receive Date: 20090421
  Receipt Date: 20090415
  Transmission Date: 20091009
  Serious: Yes (Death, Hospitalization, Other)
  Sender: FDA-Public Use
  Company Number: 2009US001122

PATIENT
  Age: 39 Year
  Sex: Female

DRUGS (7)
  1. PROGRAF [Suspect]
     Indication: LUNG TRANSPLANT
  2. PREDNISONE TAB [Suspect]
     Indication: LUNG TRANSPLANT
     Dosage: 5 MG, UID/QD
  3. AZATHIOPRINE [Suspect]
     Indication: LUNG TRANSPLANT
  4. METHYLPREDNISOLONE 16MG TAB [Suspect]
     Indication: LUNG TRANSPLANT REJECTION
     Dosage: 500 MG, UID/QD, IV NOS
     Route: 042
  5. ANTI-THYMOCYTE GLOBULIN RABBIT NOS [Suspect]
     Indication: LUNG TRANSPLANT REJECTION
     Dosage: 1.5 MG/KG, UID/QD
  6. CAMPATH [Suspect]
     Indication: LUNG TRANSPLANT REJECTION
     Dosage: 30 MG, TOTAL DOSE
     Dates: start: 20060501, end: 20060501
  7. VORICONAZOLE (CORICONAZOLE) [Concomitant]

REACTIONS (9)
  - CATHETER SEPSIS [None]
  - CD4 LYMPHOCYTES DECREASED [None]
  - ENCEPHALITIS ALLERGIC [None]
  - ENCEPHALITIS VIRAL [None]
  - LUNG INFECTION [None]
  - LUNG TRANSPLANT REJECTION [None]
  - ORGANISING PNEUMONIA [None]
  - PROGRESSIVE MULTIFOCAL LEUKOENCEPHALOPATHY [None]
  - RESPIRATORY FAILURE [None]
